FAERS Safety Report 7967372-2 (Version None)
Quarter: 2011Q4

REPORT INFORMATION
  Report Type: 
  Country: None (occurrence: None)
  Receive Date: 20111209
  Receipt Date: 20111205
  Transmission Date: 20120403
  Serious: Yes (Other)
  Sender: FDA-Public Use
  Company Number: US-ABBOTT-11P-163-0857941-00

PATIENT
  Age: 39 Year
  Sex: Female

DRUGS (3)
  1. EPIVIR [Suspect]
     Indication: ANTIVIRAL TREATMENT
     Dosage: 300 MG DAILY, TAKEN AT CONCEPTION
     Route: 048
     Dates: start: 20100715
  2. KALETRA [Suspect]
     Indication: ANTIVIRAL TREATMENT
     Dosage: 4 TABLETS DAILY, TAKEN AT CONCEPTION
     Route: 048
     Dates: start: 20100715
  3. VIREAD [Suspect]
     Indication: ANTIVIRAL TREATMENT
     Dosage: 300 MG DAILY, TAKEN AT CONCEPTION
     Route: 048
     Dates: start: 20100715

REACTIONS (3)
  - PREMATURE SEPARATION OF PLACENTA [None]
  - INFLAMMATION [None]
  - THROMBOSIS [None]
